FAERS Safety Report 4831310-1 (Version None)
Quarter: 2005Q4

REPORT INFORMATION
  Report Type: 
  Country: None (occurrence: None)
  Receive Date: 20051114
  Receipt Date: 20051101
  Transmission Date: 20060501
  Serious: Yes (Death, Hospitalization)
  Sender: FDA-Public Use
  Company Number: 2005RR-01023

PATIENT
  Age: 72 Year
  Sex: Female

DRUGS (15)
  1. METFORMIN HCL [Suspect]
     Indication: DIABETES MELLITUS
     Dosage: 850 MG, TID, ORAL
     Route: 048
     Dates: end: 20040513
  2. THYROXINE [Concomitant]
  3. CO-PROXMOL [Concomitant]
  4. BENDROFLUAZIDE [Concomitant]
  5. ATENOLOL TABLETS BP [Concomitant]
  6. PERINDOPRIL [Concomitant]
  7. AMLODIPINE [Concomitant]
  8. CANDESARTAN [Concomitant]
  9. GLICLAZIDE (GLICLAZIDE) [Concomitant]
  10. DISPERSIBLE ASPIRIN TABLETS BP [Concomitant]
  11. FERROUS FUMARATE [Concomitant]
  12. ATORVASTATIN CALCIUM [Concomitant]
  13. INDOMETACIN CAPSULES [Concomitant]
  14. OMEPRAZOLE [Concomitant]
  15. TRIMETHOPRIM [Concomitant]

REACTIONS (7)
  - CHEST PAIN [None]
  - CYANOSIS [None]
  - DYSPNOEA [None]
  - LACTIC ACIDOSIS [None]
  - RENAL FAILURE ACUTE [None]
  - SOMNOLENCE [None]
  - URINARY TRACT INFECTION [None]
